FAERS Safety Report 10507209 (Version 1)
Quarter: 2014Q4

REPORT INFORMATION
  Report Type: Spontaneous
  Country: US (occurrence: None)
  Receive Date: 20141008
  Receipt Date: 20141008
  Transmission Date: 20150528
  Serious: Yes (Other)
  Sender: FDA-Public Use
  Company Number: None

PATIENT
  Age: 48 Year
  Sex: Female
  Weight: 77.11 kg

DRUGS (1)
  1. FLUOXETINE [Suspect]
     Active Substance: FLUOXETINE\FLUOXETINE HYDROCHLORIDE
     Indication: DRUG THERAPY
     Route: 048
     Dates: end: 20110531

REACTIONS (4)
  - Product substitution issue [None]
  - Mood altered [None]
  - Condition aggravated [None]
  - Product quality issue [None]

NARRATIVE: CASE EVENT DATE: 2010
